FAERS Safety Report 7385997-2 (Version None)
Quarter: 2011Q1

REPORT INFORMATION
  Report Type: 
  Country: None (occurrence: None)
  Receive Date: 20110331
  Receipt Date: 20110323
  Transmission Date: 20110831
  Serious: Yes (Other)
  Sender: FDA-Public Use
  Company Number: US-SANOFI-AVENTIS-2011SA018429

PATIENT
  Age: 1 Year
  Sex: Female

DRUGS (1)
  1. LOVENOX [Suspect]
     Route: 015

REACTIONS (4)
  - OTITIS MEDIA [None]
  - ATRIOVENTRICULAR BLOCK SECOND DEGREE [None]
  - DRUG EXPOSURE VIA BREAST MILK [None]
  - DRUG EXPOSURE DURING PREGNANCY [None]
